FAERS Safety Report 7632107-X (Version None)
Quarter: 2011Q3

REPORT INFORMATION
  Report Type: 
  Country: None (occurrence: None)
  Receive Date: 20110725
  Receipt Date: 20110725
  Transmission Date: 20111222
  Serious: Yes (Life-Threatening)
  Sender: FDA-Public Use
  Company Number: None

PATIENT
  Age: 70 Year
  Sex: Male
  Weight: 81.646 kg

DRUGS (2)
  1. GRAPEFRUIT JUICE - FRESH [Concomitant]
     Dosage: 2 QUARTS ?
     Route: 048
     Dates: start: 20110523, end: 20110524
  2. TERAZOSIN HCL [Suspect]
     Indication: BENIGN PROSTATIC HYPERPLASIA
     Dosage: 10 MG
     Route: 048
     Dates: start: 20090101, end: 20110524

REACTIONS (6)
  - HYPOTENSION [None]
  - WEIGHT INCREASED [None]
  - DEHYDRATION [None]
  - HYPERHIDROSIS [None]
  - VERTIGO [None]
  - ASTHENIA [None]
